FAERS Safety Report 14220661 (Version 1)
Quarter: 2017Q4

REPORT INFORMATION
  Report Type: Spontaneous
  Country: JP (occurrence: JP)
  Receive Date: 20171124
  Receipt Date: 20171124
  Transmission Date: 20180321
  Serious: Yes (Death)
  Sender: FDA-Public Use
  Company Number: JP-SA-2017SA208655

PATIENT
  Sex: Male
  Weight: 50 kg

DRUGS (1)
  1. MYOZYME [Suspect]
     Active Substance: ALGLUCOSIDASE ALFA
     Indication: GLYCOGEN STORAGE DISEASE TYPE II
     Route: 041
     Dates: start: 20080219, end: 20171010

REACTIONS (2)
  - Hypercapnia [Fatal]
  - Disease progression [Fatal]

NARRATIVE: CASE EVENT DATE: 20171024
